FAERS Safety Report 18181654 (Version 1)
Quarter: 2020Q3

REPORT INFORMATION
  Report Type: Report from Study
  Country: DE (occurrence: DE)
  Receive Date: 20200821
  Receipt Date: 20200821
  Transmission Date: 20201103
  Serious: Yes (Hospitalization)
  Sender: FDA-Public Use
  Company Number: DE-ACTELION-A-CH2020-208532

PATIENT
  Age: 79 Year
  Sex: Male
  Weight: 73 kg

DRUGS (10)
  1. MACITENTAN [Suspect]
     Active Substance: MACITENTAN
     Indication: CARDIAC FAILURE
     Dosage: 10 MG, OD
     Route: 048
     Dates: start: 20200803, end: 20200817
  2. FLUTICASONE. [Concomitant]
     Active Substance: FLUTICASONE
     Indication: CHRONIC OBSTRUCTIVE PULMONARY DISEASE
     Dosage: 22 MG, OD
     Dates: start: 201908
  3. METOHEXAL SUCC [Concomitant]
     Active Substance: METOPROLOL SUCCINATE
     Indication: ATRIAL FIBRILLATION
     Dosage: 95 MG, BID
     Route: 048
     Dates: start: 20200510
  4. BETNESOL?V [Concomitant]
     Indication: RASH
     Dosage: 0.1%
     Route: 061
     Dates: start: 20200731
  5. VILANTEROL [Concomitant]
     Active Substance: VILANTEROL TRIFENATATE
     Indication: CHRONIC OBSTRUCTIVE PULMONARY DISEASE
     Dosage: 184 MG, OD
     Dates: start: 201909
  6. CANDESARTAN. [Concomitant]
     Active Substance: CANDESARTAN
     Indication: CARDIAC FAILURE
     Dosage: 4 MG, BID
     Route: 048
     Dates: start: 2019, end: 20200817
  7. TORASEMID [Concomitant]
     Active Substance: TORSEMIDE
     Dosage: 50 MG, OD
     Route: 048
     Dates: start: 20200812
  8. INSPRA [Concomitant]
     Active Substance: EPLERENONE
     Indication: CARDIAC FAILURE
     Dosage: 25 MG, OD
     Route: 048
     Dates: start: 2017, end: 20200818
  9. MACITENTAN [Suspect]
     Active Substance: MACITENTAN
     Indication: PULMONARY VASCULAR DISORDER
  10. TORASEMID [Concomitant]
     Active Substance: TORSEMIDE
     Indication: CARDIAC FAILURE
     Dosage: 75 MG, OD
     Route: 048
     Dates: start: 20200722, end: 20200811

REACTIONS (6)
  - Asthenia [Not Recovered/Not Resolved]
  - Blood creatinine increased [Not Recovered/Not Resolved]
  - Blood urea increased [Not Recovered/Not Resolved]
  - Acute kidney injury [Not Recovered/Not Resolved]
  - Glomerular filtration rate decreased [Not Recovered/Not Resolved]
  - Fatigue [Not Recovered/Not Resolved]

NARRATIVE: CASE EVENT DATE: 20200811
